FAERS Safety Report 6415520-8 (Version None)
Quarter: 2009Q4

REPORT INFORMATION
  Report Type: 
  Country: None (occurrence: None)
  Receive Date: 20091027
  Receipt Date: 20091016
  Transmission Date: 20100525
  Serious: Yes (Hospitalization)
  Sender: FDA-Public Use
  Company Number: US-JNJFOC-20090805429

PATIENT
  Sex: Female
  Weight: 50.8 kg

DRUGS (1)
  1. REMICADE [Suspect]
     Indication: CROHN'S DISEASE
     Dosage: ON INFLIXIMAB FOR 1 YEAR
     Route: 042
     Dates: start: 20080801, end: 20090801

REACTIONS (1)
  - LUPUS-LIKE SYNDROME [None]
